FAERS Safety Report 7774884-3 (Version None)
Quarter: 2011Q3

REPORT INFORMATION
  Report Type: 
  Country: None (occurrence: None)
  Receive Date: 20110921
  Receipt Date: 20110526
  Transmission Date: 20111222
  Serious: Yes (Hospitalization)
  Sender: FDA-Public Use
  Company Number: UTC-007430

PATIENT
  Age: 71 Year
  Sex: Male

DRUGS (4)
  1. COUMADIN [Suspect]
  2. DIURETICS (DIURETICS) [Concomitant]
  3. TYVASO [Suspect]
     Indication: PULMONARY ARTERIAL HYPERTENSION
     Dosage: 216 MCG (54 MCG, 4 IN 1 D) INHALATION
     Route: 055
     Dates: start: 20110222, end: 20110524
  4. REVATIO [Concomitant]

REACTIONS (1)
  - SYNCOPE [None]
